FAERS Safety Report 16336990 (Version 2)
Quarter: 2019Q2

REPORT INFORMATION
  Report Type: Spontaneous
  Country: DE (occurrence: DE)
  Receive Date: 20190521
  Receipt Date: 20190524
  Transmission Date: 20190711
  Serious: Yes (Other)
  Sender: FDA-Public Use
  Company Number: DE-TEVA-2019-DE-1051232

PATIENT
  Age: 31 Year
  Sex: Male
  Weight: 115 kg

DRUGS (1)
  1. METHOTREXAT 1000 GRY [Suspect]
     Active Substance: METHOTREXATE SODIUM
     Indication: ACUTE LYMPHOCYTIC LEUKAEMIA
     Route: 042
     Dates: start: 20190404, end: 20190405

REACTIONS (2)
  - Acute kidney injury [Not Recovered/Not Resolved]
  - Drug clearance decreased [Not Recovered/Not Resolved]

NARRATIVE: CASE EVENT DATE: 20190406
